FAERS Safety Report 10175551 (Version 3)
Quarter: 2014Q2

REPORT INFORMATION
  Report Type: Report from Study
  Country: AU (occurrence: AU)
  Receive Date: 20140516
  Receipt Date: 20140606
  Transmission Date: 20141212
  Serious: Yes (Hospitalization)
  Sender: FDA-Public Use
  Company Number: AU-ROCHE-1399476

PATIENT
  Age: 65 Year
  Sex: Male

DRUGS (1)
  1. ACTEMRA [Suspect]
     Indication: RHEUMATOID ARTHRITIS
     Dosage: MOST RECENT DOSE PRIOR TO SAE: 17/APR/2014.
     Route: 042
     Dates: start: 20140217, end: 20140531

REACTIONS (7)
  - Pyrexia [Recovered/Resolved]
  - Rash [Recovering/Resolving]
  - Hyperhidrosis [Unknown]
  - Malaise [Not Recovered/Not Resolved]
  - Arthritis [Recovering/Resolving]
  - Palpable purpura [Unknown]
  - Erythema nodosum [Unknown]
